FAERS Safety Report 11143211 (Version 1)
Quarter: 2015Q2

REPORT INFORMATION
  Report Type: Spontaneous
  Country: US (occurrence: US)
  Receive Date: 20150526
  Receipt Date: 20150526
  Transmission Date: 20150821
  Serious: No
  Sender: FDA-Public Use
  Company Number: US-NOVEN PHARMACEUTICALS, INC.-15US013658

PATIENT
  Sex: Female

DRUGS (3)
  1. MINIVELLE [Suspect]
     Active Substance: ESTRADIOL
     Dosage: 0.0375MG, 1/2 PATCH, UNK
     Dates: start: 20150116
  2. MINIVELLE [Suspect]
     Active Substance: ESTRADIOL
     Dosage: 0.075 MG, UNK
     Dates: start: 201412, end: 201501
  3. MINIVELLE [Suspect]
     Active Substance: ESTRADIOL
     Indication: OSTEOPOROSIS POSTMENOPAUSAL
     Dosage: 0.0375 MG, UNK
     Route: 062
     Dates: start: 201411, end: 201412

REACTIONS (6)
  - Pain [Recovered/Resolved]
  - Breast tenderness [Recovered/Resolved]
  - Headache [Recovered/Resolved]
  - Treatment noncompliance [Recovered/Resolved]
  - Wrong technique in drug usage process [Not Recovered/Not Resolved]
  - Off label use [Not Recovered/Not Resolved]

NARRATIVE: CASE EVENT DATE: 201411
